FAERS Safety Report 6438075-0 (Version None)
Quarter: 2009Q4

REPORT INFORMATION
  Report Type: 
  Country: None (occurrence: None)
  Receive Date: 20091112
  Receipt Date: 20091106
  Transmission Date: 20100525
  Serious: Yes (Other)
  Sender: FDA-Public Use
  Company Number: US-ELI_LILLY_AND_COMPANY-US200911001756

PATIENT
  Sex: Male

DRUGS (12)
  1. HUMALOG [Suspect]
     Dates: start: 20010101
  2. HUMALOG MIX 75/25 [Suspect]
     Dosage: 100 U, 2/D
  3. HUMALOG MIX 75/25 [Suspect]
     Dosage: 100 U, 2/D
  4. HUMALOG MIX 75/25 [Suspect]
     Dosage: 100 U, 2/D
  5. ASPIRIN [Concomitant]
  6. LOVAZA [Concomitant]
     Dosage: 4 G, DAILY (1/D)
  7. METOPROLOL [Concomitant]
     Dosage: 100 MG, DAILY (1/D)
  8. PLAVIX [Concomitant]
     Dosage: 75 MG, DAILY (1/D)
  9. CELEBREX [Concomitant]
     Dosage: 200 MG, UNK
  10. LISINOPRIL [Concomitant]
     Dosage: 5 MG, UNK
  11. FORTAMET [Concomitant]
     Dosage: 1000 MG, 2/D
  12. CRESTOR [Concomitant]
     Dosage: 20 MG, DAILY (1/D)

REACTIONS (5)
  - CARDIAC DISORDER [None]
  - INJECTION SITE HAEMORRHAGE [None]
  - INJECTION SITE SCAR [None]
  - INJECTION SITE SWELLING [None]
  - SWELLING [None]
